FAERS Safety Report 5316359-7 (Version None)
Quarter: 2007Q2

REPORT INFORMATION
  Report Type: 
  Country: None (occurrence: None)
  Receive Date: 20070430
  Receipt Date: 20070408
  Transmission Date: 20071010
  Serious: Yes (Other)
  Sender: FDA-Public Use
  Company Number: 1022556-2007-00115

PATIENT

DRUGS (1)
  1. UNISOM [Suspect]
     Dosage: 50 PILLS
     Dates: start: 20070408

REACTIONS (2)
  - INTENTIONAL OVERDOSE [None]
  - VOMITING [None]
